FAERS Safety Report 8638253 (Version 3)
Quarter: 2012Q4

REPORT INFORMATION
  Report Type: 
  Country: CO (occurrence: CO)
  Receive Date: 20120627
  Receipt Date: 20121003
  Transmission Date: 20130627
  Serious: Yes (Hospitalization)
  Sender: FDA-Public Use
  Company Number: PHHY2012CO054702

PATIENT
  Age: 16 Year
  Sex: Female

DRUGS (5)
  1. AFINITOR [Suspect]
     Indication: TUBEROUS SCLEROSIS
     Dosage: 2.5 mg
     Route: 048
     Dates: start: 20120607
  2. VALPROIC ACID [Concomitant]
  3. VIGABATRIN [Concomitant]
  4. DICLOFENAC [Concomitant]
  5. ANTIEMETICS [Concomitant]

REACTIONS (6)
  - Sleep apnoea syndrome [Recovering/Resolving]
  - Convulsion [Recovering/Resolving]
  - Vomiting [Recovering/Resolving]
  - Abdominal pain upper [Recovering/Resolving]
  - Cough [Recovering/Resolving]
  - Nausea [Recovering/Resolving]
